FAERS Safety Report 8545672-5 (Version None)
Quarter: 2012Q3

REPORT INFORMATION
  Report Type: 
  Country: None (occurrence: None)
  Receive Date: 20120727
  Receipt Date: 20120726
  Transmission Date: 20120928
  Serious: Yes (Other)
  Sender: FDA-Public Use
  Company Number: US-GILEAD-2012-0051481

PATIENT
  Age: 22 Year
  Sex: Female

DRUGS (6)
  1. EMTRICITABINE/TENOFOVIR DISOPROXIL FUMARATE [Suspect]
     Indication: HIV INFECTION
     Dosage: 1 DF, QD
     Route: 048
  2. PREZISTA [Concomitant]
     Indication: HIV INFECTION
     Dosage: 2 DF, QD
     Route: 048
     Dates: end: 20111111
  3. NORVIR [Concomitant]
     Indication: HIV INFECTION
     Dosage: 1 DF, QD
     Route: 048
     Dates: end: 20111111
  4. NORVIR [Concomitant]
     Dosage: 1 UNK, UNK
     Route: 048
     Dates: start: 20120110
  5. RILPIVIRINE [Concomitant]
     Indication: HIV INFECTION
     Dosage: 1 DF, QD
     Route: 048
     Dates: start: 20111111, end: 20120110
  6. PREZISTA [Concomitant]
     Dosage: 2 DF, QD
     Route: 048
     Dates: start: 20120110

REACTIONS (1)
  - ABORTION SPONTANEOUS [None]
